FAERS Safety Report 9334278 (Version 1)
Quarter: 2013Q2

REPORT INFORMATION
  Report Type: Spontaneous
  Country: NZ (occurrence: None)
  Receive Date: 20130604
  Receipt Date: 20130604
  Transmission Date: 20140414
  Serious: Yes (Hospitalization)
  Sender: FDA-Public Use
  Company Number: FK201301712

PATIENT
  Age: 54 Year
  Sex: Male

DRUGS (4)
  1. DOXYCYCLINE [Suspect]
     Indication: BRONCHIECTASIS
     Route: 048
  2. WARFARIN (WARFARIN) [Suspect]
     Indication: ATRIAL FIBRILLATION
  3. ENOXAPARIN [Concomitant]
  4. OPIOIDS [Concomitant]

REACTIONS (2)
  - Calciphylaxis [None]
  - Skin ulcer [None]
